FAERS Safety Report 9365762 (Version 2)
Quarter: 2013Q3

REPORT INFORMATION
  Report Type: Spontaneous
  Country: AU (occurrence: AU)
  Receive Date: 20130625
  Receipt Date: 20130704
  Transmission Date: 20140515
  Serious: Yes (Hospitalization, Other)
  Sender: FDA-Public Use
  Company Number: AU-AMGEN-AUSSP2013043574

PATIENT
  Age: 75 Year
  Sex: Male

DRUGS (2)
  1. XGEVA [Suspect]
     Indication: METASTASES TO BONE
     Dosage: 120 MG, Q4WK
     Route: 058
     Dates: start: 20130121
  2. XGEVA [Suspect]
     Indication: PROSTATE CANCER

REACTIONS (7)
  - Metastases to lymph nodes [Unknown]
  - Metastases to liver [Unknown]
  - Metastases to bone [Unknown]
  - Lymphoedema [Not Recovered/Not Resolved]
  - Thrombosis [Not Recovered/Not Resolved]
  - Constipation [Not Recovered/Not Resolved]
  - Oral candidiasis [Not Recovered/Not Resolved]
